FAERS Safety Report 7013677-1 (Version None)
Quarter: 2010Q3

REPORT INFORMATION
  Report Type: 
  Country: None (occurrence: None)
  Receive Date: 20100924
  Receipt Date: 20100324
  Transmission Date: 20110219
  Serious: Yes (Death)
  Sender: FDA-Public Use
  Company Number: PHHY2010ZA59753

PATIENT
  Sex: Female

DRUGS (1)
  1. GLEEVEC [Suspect]
     Dosage: 600 MG
     Dates: start: 20091015

REACTIONS (2)
  - MALIGNANT NEOPLASM PROGRESSION [None]
  - SEPSIS [None]
